FAERS Safety Report 8698073 (Version 2)
Quarter: 2012Q4

REPORT INFORMATION
  Report Type: Report from Study
  Country: BR (occurrence: BR)
  Receive Date: 20120802
  Receipt Date: 20121029
  Transmission Date: 20130627
  Serious: Yes (Hospitalization)
  Sender: FDA-Public Use
  Company Number: BR-BRISTOL-MYERS SQUIBB COMPANY-16797771

PATIENT
  Age: 59 Year
  Sex: Male
  Weight: 96 kg

DRUGS (8)
  1. CISPLATIN [Suspect]
     Indication: NON-SMALL CELL LUNG CANCER
     Dosage: Last dose on 28May2012
     Route: 042
     Dates: start: 20120326, end: 20120615
  2. PEMETREXED DISODIUM [Suspect]
     Indication: NON-SMALL CELL LUNG CANCER
     Dosage: Last dose on 28May2012
     Route: 042
     Dates: start: 20120326, end: 20120615
  3. FOLIC ACID [Concomitant]
     Dates: start: 20120314
  4. VITAMIN B12 [Concomitant]
     Dates: start: 20120314
  5. DEXAMETHASONE [Concomitant]
     Dates: start: 20120521
  6. PREDNISONE [Concomitant]
  7. LOSARTAN POTASSIUM [Concomitant]
     Dates: start: 20120315
  8. PANCOF [Concomitant]
     Dates: start: 20120315

REACTIONS (2)
  - Pneumonia [Recovered/Resolved]
  - Stomatitis [Recovered/Resolved]
